FAERS Safety Report 7264474-3 (Version None)
Quarter: 2011Q1

REPORT INFORMATION
  Report Type: 
  Country: None (occurrence: None)
  Receive Date: 20110131
  Receipt Date: 20110120
  Transmission Date: 20110831
  Serious: Yes (Other)
  Sender: FDA-Public Use
  Company Number: US-JNJFOC-20110105962

PATIENT
  Sex: Female
  Weight: 73.94 kg

DRUGS (7)
  1. ULTRACET [Concomitant]
     Indication: PAIN
     Dosage: 37.5-375MG
     Route: 048
  2. METHOTREXATE [Concomitant]
     Indication: RHEUMATOID ARTHRITIS
     Route: 048
  3. AMITRIPTYLINE HCL [Concomitant]
     Indication: SLEEP DISORDER THERAPY
     Route: 048
  4. WELLBUTRIN [Concomitant]
     Indication: DEPRESSION
     Route: 048
  5. REMICADE [Suspect]
     Indication: RHEUMATOID ARTHRITIS
     Route: 042
  6. PREDNISONE [Concomitant]
     Indication: RHEUMATOID ARTHRITIS
     Route: 048
  7. COMBIGAN [Concomitant]
     Indication: GLAUCOMA
     Dosage: ONE DROP BOTH EYES DAILY
     Route: 047

REACTIONS (3)
  - ILEUS [None]
  - CHEST PAIN [None]
  - RHEUMATOID ARTHRITIS [None]
